FAERS Safety Report 4715770-2 (Version None)
Quarter: 2005Q3

REPORT INFORMATION
  Report Type: 
  Country: None (occurrence: None)
  Receive Date: 20050718
  Receipt Date: 20050706
  Transmission Date: 20060218
  Serious: Yes (Hospitalization)
  Sender: FDA-Public Use
  Company Number: DEWYE801506JUL05

PATIENT
  Age: 60 Year
  Sex: Female
  Weight: 90 kg

DRUGS (9)
  1. ENBREL [Suspect]
     Indication: RHEUMATOID ARTHRITIS
     Route: 058
     Dates: start: 20040326, end: 20040423
  2. PREDNISOLONE [Concomitant]
     Indication: RHEUMATOID ARTHRITIS
     Route: 048
  3. BRONCHORETARD [Concomitant]
     Indication: CHRONIC OBSTRUCTIVE PULMONARY DISEASE
     Route: 048
  4. KLIOGEST [Concomitant]
  5. CALCIUM CARBONATE [Concomitant]
  6. COLECALCIFEROL [Concomitant]
  7. LEVOTHYROXINE [Concomitant]
  8. VERAPAMIL HYDROCHLORIDE [Concomitant]
  9. METHOTREXATE [Concomitant]
     Dates: start: 20020701

REACTIONS (3)
  - CHRONIC OBSTRUCTIVE PULMONARY DISEASE [None]
  - CONDITION AGGRAVATED [None]
  - RESPIRATORY TRACT INFECTION [None]
